FAERS Safety Report 16473049 (Version 2)
Quarter: 2019Q3

REPORT INFORMATION
  Report Type: Report from Study
  Country: MX (occurrence: MX)
  Receive Date: 20190625
  Receipt Date: 20190709
  Transmission Date: 20191004
  Serious: Yes (Other)
  Sender: FDA-Public Use
  Company Number: PHHY2019MX135492

PATIENT
  Age: 84 Year
  Sex: Male
  Weight: 40 kg

DRUGS (4)
  1. LEVODOPA [Concomitant]
     Active Substance: LEVODOPA
     Indication: PARKINSON^S DISEASE
     Dosage: 4 DF, QD (8 YEARS AGO)
     Route: 048
  2. PREGABALIN. [Concomitant]
     Active Substance: PREGABALIN
     Indication: PARKINSON^S DISEASE
     Dosage: 3 DF, QD (1 YEAR AGO)
     Route: 048
  3. EXELON PATCH [Suspect]
     Active Substance: RIVASTIGMINE
     Indication: DEMENTIA ALZHEIMER^S TYPE
     Dosage: 9.5 MG, QD PATCH 10 (CM2)
     Route: 062
  4. ANGIOTROFIN [Concomitant]
     Active Substance: DILTIAZEM HYDROCHLORIDE
     Indication: CARDIAC DISORDER
     Dosage: 1 DF, QD (9 YEARS AGO)
     Route: 048

REACTIONS (9)
  - Cerebrovascular accident [Recovered/Resolved with Sequelae]
  - Parkinson^s disease [Unknown]
  - Feeling abnormal [Unknown]
  - Pulmonary congestion [Recovered/Resolved]
  - Pharyngitis [Unknown]
  - Hemiplegia [Not Recovered/Not Resolved]
  - Cerebral palsy [Not Recovered/Not Resolved]
  - Immobile [Unknown]
  - Urinary tract infection [Recovered/Resolved]

NARRATIVE: CASE EVENT DATE: 20190512
